FAERS Safety Report 6204158-3 (Version None)
Quarter: 2009Q2

REPORT INFORMATION
  Report Type: 
  Country: None (occurrence: None)
  Receive Date: 20090527
  Receipt Date: 20090406
  Transmission Date: 20091009
  Serious: No
  Sender: FDA-Public Use
  Company Number: US-BAYER-200917978NA

PATIENT
  Age: 77 Year

DRUGS (1)
  1. ULTRAVIST 150 [Suspect]
     Indication: DRUG USE FOR UNKNOWN INDICATION
     Dosage: POWER INJECTOR
     Route: 042
     Dates: start: 20090403, end: 20090403

REACTIONS (2)
  - EYELID OEDEMA [None]
  - PRURITUS [None]
